FAERS Safety Report 19497121 (Version 3)
Quarter: 2021Q4

REPORT INFORMATION
  Report Type: Spontaneous
  Country: US (occurrence: None)
  Receive Date: 20210706
  Receipt Date: 20211109
  Transmission Date: 20220303
  Serious: No
  Sender: FDA-Public Use
  Company Number: 2021A585708

PATIENT
  Age: 29835 Day
  Weight: 152 kg

DRUGS (1)
  1. TUDORZA PRESSAIR [Suspect]
     Active Substance: ACLIDINIUM BROMIDE
     Indication: Chronic obstructive pulmonary disease
     Dosage: 400??G/D
     Route: 055
     Dates: start: 2020

REACTIONS (4)
  - Anxiety [Unknown]
  - Dyspnoea [Unknown]
  - Intentional device misuse [Not Recovered/Not Resolved]
  - Device malfunction [Unknown]

NARRATIVE: CASE EVENT DATE: 20210629
